FAERS Safety Report 5232847-6 (Version None)
Quarter: 2007Q1

REPORT INFORMATION
  Report Type: 
  Country: None (occurrence: None)
  Receive Date: 20070207
  Receipt Date: 20070130
  Transmission Date: 20070707
  Serious: Yes (Hospitalization)
  Sender: FDA-Public Use
  Company Number: DE-JNJFOC-20070201409

PATIENT
  Sex: Female

DRUGS (2)
  1. TRAMADOL HCL [Suspect]
     Indication: DRUG USE FOR UNKNOWN INDICATION
     Route: 065
  2. OXYCODONE/NALOXONE [Suspect]
     Indication: DRUG USE FOR UNKNOWN INDICATION
     Route: 048

REACTIONS (4)
  - CIRCULATORY COLLAPSE [None]
  - DEPRESSED LEVEL OF CONSCIOUSNESS [None]
  - DRUG DEPENDENCE [None]
  - DRUG WITHDRAWAL SYNDROME [None]
